FAERS Safety Report 6937369-X (Version None)
Quarter: 2010Q3

REPORT INFORMATION
  Report Type: 
  Country: None (occurrence: None)
  Receive Date: 20100823
  Receipt Date: 20100813
  Transmission Date: 20110219
  Serious: Yes (Other)
  Sender: FDA-Public Use
  Company Number: CHPA2010US13086

PATIENT
  Age: 75 Year
  Sex: Female
  Weight: 77.098 kg

DRUGS (2)
  1. GAS-X EXTRA STR CHEWABLE TABLETS UNKNOWN (NCH) [Suspect]
     Indication: FLATULENCE
     Dosage: UNK, PRN
     Route: 048
  2. GAS-X EXTRA STRENGTH SOFTGELS (NCH) [Suspect]
     Indication: FLATULENCE
     Dosage: UNK, PRN
     Route: 048
     Dates: start: 20100101, end: 20100801

REACTIONS (2)
  - CATARACT [None]
  - CATARACT OPERATION [None]
